FAERS Safety Report 6920922-7 (Version None)
Quarter: 2010Q3

REPORT INFORMATION
  Report Type: 
  Country: None (occurrence: None)
  Receive Date: 20100812
  Receipt Date: 20100803
  Transmission Date: 20110219
  Serious: Yes (Other)
  Sender: FDA-Public Use
  Company Number: US-ASTRAZENECA-2010SE36259

PATIENT

DRUGS (2)
  1. SEROQUEL [Suspect]
     Route: 048
  2. GEODON [Concomitant]

REACTIONS (5)
  - AGRANULOCYTOSIS [None]
  - BONE MARROW FAILURE [None]
  - HEPATITIS C [None]
  - HIV INFECTION [None]
  - WHITE BLOOD CELL COUNT DECREASED [None]
